FAERS Safety Report 13911222 (Version 2)
Quarter: 2017Q3

REPORT INFORMATION
  Report Type: Spontaneous
  Country: BR (occurrence: BR)
  Receive Date: 20170828
  Receipt Date: 20170907
  Transmission Date: 20171127
  Serious: Yes (Hospitalization, Other)
  Sender: FDA-Public Use
  Company Number: BR-SA-2017SA150399

PATIENT
  Age: 65 Year
  Sex: Female
  Weight: 43 kg

DRUGS (6)
  1. CLIKSTAR [Suspect]
     Active Substance: CLIKSTAR
     Indication: TYPE 1 DIABETES MELLITUS
  2. APIDRA [Suspect]
     Active Substance: INSULIN GLULISINE
     Indication: TYPE 1 DIABETES MELLITUS
     Dosage: MAXIMUM OF 10IU,BECAUSE IT VARIED ACCORDING TO GLYCEMIA LEVEL (DEXTRO?TEST)
     Route: 058
     Dates: start: 201308
  3. INSULIN [Concomitant]
     Active Substance: INSULIN NOS
     Indication: TYPE 1 DIABETES MELLITUS
     Dosage: MAXIMUM OF 10IU, BECAUSE IT VARIED ACCORDING TO GLYCEMIA LEVEL
     Route: 058
  4. CLIKSTAR [Suspect]
     Active Substance: CLIKSTAR
     Indication: TYPE 1 DIABETES MELLITUS
     Dates: start: 201308
  5. LANTUS [Suspect]
     Active Substance: INSULIN GLARGINE
     Indication: TYPE 1 DIABETES MELLITUS
     Dosage: 24IU IN THE MORNING AND 16IU AT NIGHT
     Route: 058
     Dates: start: 201308
  6. DIVELOL [Concomitant]
     Indication: HYPERTENSION
     Dosage: 6.25MG
     Route: 048
     Dates: start: 20170707

REACTIONS (8)
  - Expired product administered [Unknown]
  - Pollakiuria [Recovered/Resolved]
  - Device use issue [Unknown]
  - Thirst [Recovered/Resolved]
  - Blood glucose increased [Recovered/Resolved]
  - Diarrhoea [Recovered/Resolved]
  - Rectal neoplasm [Recovered/Resolved]
  - Product use issue [Unknown]

NARRATIVE: CASE EVENT DATE: 201707
